FAERS Safety Report 7771437-8 (Version None)
Quarter: 2011Q3

REPORT INFORMATION
  Report Type: 
  Country: None (occurrence: None)
  Receive Date: 20110922
  Receipt Date: 20110512
  Transmission Date: 20111222
  Serious: No
  Sender: FDA-Public Use
  Company Number: US-ASTRAZENECA-2009SE13895

PATIENT
  Age: 25 Year
  Sex: Female
  Weight: 68 kg

DRUGS (2)
  1. SEROQUEL XR [Suspect]
     Dosage: DAILY
     Route: 048
     Dates: start: 20090526
  2. SEROQUEL XR [Suspect]
     Route: 048

REACTIONS (6)
  - SOMNOLENCE [None]
  - DRUG DOSE OMISSION [None]
  - ANXIETY [None]
  - MALAISE [None]
  - VOMITING [None]
  - DRUG WITHDRAWAL SYNDROME [None]
